FAERS Safety Report 5832627-4 (Version None)
Quarter: 2008Q3

REPORT INFORMATION
  Report Type: 
  Country: None (occurrence: None)
  Receive Date: 20080804
  Receipt Date: 20080725
  Transmission Date: 20090109
  Serious: Yes (Hospitalization, Other)
  Sender: FDA-Public Use
  Company Number: PHHY2008FR15850

PATIENT

DRUGS (12)
  1. TRILEPTAL [Suspect]
     Indication: GLOSSOPHARYNGEAL NEURALGIA
     Dosage: UNK
     Dates: start: 20080520, end: 20080618
  2. TRILEPTAL [Suspect]
     Dosage: UNK
  3. TEGRETOL [Concomitant]
  4. LYRICA [Concomitant]
  5. PLAVIX [Concomitant]
     Dosage: UNK
     Dates: start: 20080614
  6. VASTAREL ^BIOPHARMA^ [Concomitant]
     Dosage: UNK
     Dates: start: 20080614
  7. TRANXENE [Concomitant]
  8. ELISOR [Concomitant]
  9. MOPRAL [Concomitant]
  10. MOTILIUM [Concomitant]
  11. FOSAMAX [Concomitant]
  12. TRAMADOL HCL [Concomitant]

REACTIONS (5)
  - DRUG INEFFECTIVE [None]
  - GLOSSOPHARYNGEAL NEURALGIA [None]
  - HYPONATRAEMIA [None]
  - INAPPROPRIATE ANTIDIURETIC HORMONE SECRETION [None]
  - URINE SODIUM INCREASED [None]
